FAERS Safety Report 8054842-4 (Version None)
Quarter: 2012Q1

REPORT INFORMATION
  Report Type: 
  Country: None (occurrence: None)
  Receive Date: 20120119
  Receipt Date: 20120112
  Transmission Date: 20120608
  Serious: Yes (Other)
  Sender: FDA-Public Use
  Company Number: MX-SANOFI-AVENTIS-2012SA002530

PATIENT
  Age: 55 Year
  Sex: Female

DRUGS (2)
  1. AMARYL [Suspect]
     Indication: TYPE 2 DIABETES MELLITUS
     Route: 048
     Dates: start: 20090101
  2. OROXADIN [Suspect]
     Route: 048
     Dates: start: 20090101

REACTIONS (8)
  - BURNING SENSATION [None]
  - HYPERTRIGLYCERIDAEMIA [None]
  - DIABETIC NEUROPATHY [None]
  - INSOMNIA [None]
  - DYSAESTHESIA [None]
  - HYPOAESTHESIA [None]
  - HYPERCHOLESTEROLAEMIA [None]
  - HYPERGLYCAEMIA [None]
